FAERS Safety Report 4725889-8 (Version None)
Quarter: 2005Q3

REPORT INFORMATION
  Report Type: 
  Country: None (occurrence: None)
  Receive Date: 20050722
  Receipt Date: 20050722
  Transmission Date: 20060218
  Serious: No
  Sender: FDA-Public Use
  Company Number: None

PATIENT
  Age: 62 Year
  Sex: Male
  Weight: 107.9561 kg

DRUGS (2)
  1. VIAGRA [Suspect]
     Indication: DISTURBANCE IN SEXUAL AROUSAL
     Dosage: 1 OR 2 Q WEEK
  2. CIALIS [Suspect]

REACTIONS (3)
  - DIPLOPIA [None]
  - VISUAL ACUITY REDUCED [None]
  - VISUAL DISTURBANCE [None]
